FAERS Safety Report 8928550 (Version 2)
Quarter: 2013Q2

REPORT INFORMATION
  Report Type: Spontaneous
  Country: US (occurrence: US)
  Receive Date: 20121128
  Receipt Date: 20130624
  Transmission Date: 20140414
  Serious: Yes (Other)
  Sender: FDA-Public Use
  Company Number: US-UCBSA-071872

PATIENT
  Sex: Female

DRUGS (4)
  1. KEPPRA [Suspect]
     Indication: CONVULSION
  2. KEPPRA XR [Suspect]
  3. CYMBALTA [Concomitant]
  4. LASIX [Concomitant]

REACTIONS (2)
  - Brain neoplasm [Unknown]
  - Convulsion [Recovered/Resolved]
